FAERS Safety Report 6010010-9 (Version None)
Quarter: 2008Q4

REPORT INFORMATION
  Report Type: 
  Country: None (occurrence: None)
  Receive Date: 20081218
  Receipt Date: 20081208
  Transmission Date: 20090506
  Serious: Yes (Life-Threatening, Hospitalization, Other)
  Sender: FDA-Public Use
  Company Number: US-PFIZER INC-2008091115

PATIENT
  Sex: Female
  Weight: 49.887 kg

DRUGS (8)
  1. BLINDED *PLACEBO [Suspect]
     Indication: RHEUMATOID ARTHRITIS
     Route: 048
     Dates: start: 20081001, end: 20081028
  2. CELECOXIB [Suspect]
     Indication: RHEUMATOID ARTHRITIS
     Route: 048
     Dates: start: 20081001, end: 20081028
  3. BLINDED IBUPROFEN [Suspect]
     Indication: RHEUMATOID ARTHRITIS
     Route: 048
     Dates: start: 20081001, end: 20081028
  4. BLINDED NAPROXEN [Suspect]
     Indication: RHEUMATOID ARTHRITIS
     Route: 048
     Dates: start: 20081001, end: 20081028
  5. NEXIUM [Concomitant]
     Indication: PROPHYLAXIS
     Route: 048
     Dates: start: 20081001, end: 20081028
  6. LEFLUNOMIDE [Concomitant]
     Route: 048
     Dates: start: 20050101
  7. METHOTREXATE [Concomitant]
     Route: 048
     Dates: start: 20020101
  8. ACETYLSALICYLIC ACID [Concomitant]
     Route: 048
     Dates: start: 20030101

REACTIONS (3)
  - COMA [None]
  - HAEMORRHAGE INTRACRANIAL [None]
  - SUBARACHNOID HAEMORRHAGE [None]
